FAERS Safety Report 6211237-3 (Version None)
Quarter: 2009Q2

REPORT INFORMATION
  Report Type: 
  Country: None (occurrence: None)
  Receive Date: 20090602
  Receipt Date: 20090527
  Transmission Date: 20091009
  Serious: Yes (Hospitalization)
  Sender: FDA-Public Use
  Company Number: CA-ASTRAZENECA-2009UW13554

PATIENT
  Sex: Female

DRUGS (6)
  1. SYMBICORT [Suspect]
     Indication: ASTHMA
     Dosage: ORIGINALLY 2 PUFFS BID, THEN DECREASED TO 1 PUFF BID, THEN 2 PUFFS IN AM AND 1 PUFF IN EVENING
     Route: 055
     Dates: start: 20060101
  2. SYMBICORT [Suspect]
     Indication: CHRONIC OBSTRUCTIVE PULMONARY DISEASE
     Dosage: ORIGINALLY 2 PUFFS BID, THEN DECREASED TO 1 PUFF BID, THEN 2 PUFFS IN AM AND 1 PUFF IN EVENING
     Route: 055
     Dates: start: 20060101
  3. PULMICORT-100 [Suspect]
     Indication: ASTHMA
     Route: 055
     Dates: start: 20090401, end: 20090501
  4. PULMICORT-100 [Suspect]
     Indication: CHRONIC OBSTRUCTIVE PULMONARY DISEASE
     Route: 055
     Dates: start: 20090401, end: 20090501
  5. SPIRIVA [Concomitant]
  6. VENTOLIN [Concomitant]

REACTIONS (5)
  - ASTHMA [None]
  - DRUG DISPENSING ERROR [None]
  - KNEE ARTHROPLASTY [None]
  - LOWER RESPIRATORY TRACT INFECTION [None]
  - WRONG DRUG ADMINISTERED [None]
